FAERS Safety Report 5706404-9 (Version None)
Quarter: 2008Q2

REPORT INFORMATION
  Report Type: 
  Country: None (occurrence: None)
  Receive Date: 20080411
  Receipt Date: 20080328
  Transmission Date: 20081010
  Serious: Yes (Hospitalization)
  Sender: FDA-Public Use
  Company Number: 2007S1013808

PATIENT
  Age: 28 Year
  Sex: Male
  Weight: 55 kg

DRUGS (10)
  1. HUMIRA (PLACEBO) (NO PREF. NAME) [Suspect]
     Indication: RHEUMATOID ARTHRITIS
     Dosage: ; SUBCUTANEOUS
     Route: 058
     Dates: start: 20070925, end: 20071106
  2. METHOTREXATE [Suspect]
     Indication: RHEUMATOID ARTHRITIS
     Dosage: 15 MG; WEEKLY; ORAL
     Route: 048
     Dates: start: 20070926, end: 20071121
  3. DICLOFENAC SODIUM [Concomitant]
  4. PARACETAMOL [Concomitant]
  5. PREDNISONE [Concomitant]
  6. PREDNISONE [Concomitant]
  7. PREDNISONE [Concomitant]
  8. PREDNISONE [Concomitant]
  9. FOLIC ACID [Concomitant]
  10. PREDNISONE [Concomitant]

REACTIONS (6)
  - DIARRHOEA [None]
  - DUODENITIS [None]
  - HYPERHIDROSIS [None]
  - NAUSEA [None]
  - RHEUMATOID ARTHRITIS [None]
  - WEIGHT DECREASED [None]
